FAERS Safety Report 18502329 (Version 1)
Quarter: 2020Q4

REPORT INFORMATION
  Report Type: Other
  Country: US (occurrence: US)
  Receive Date: 20201113
  Receipt Date: 20201113
  Transmission Date: 20210114
  Serious: No
  Sender: FDA-Public Use
  Company Number: US-LEADIANT BIOSCIENCES INC-2020STPI000135

PATIENT
  Sex: Male

DRUGS (26)
  1. FISH OIL [Concomitant]
     Active Substance: FISH OIL
  2. ZYRTEC [Concomitant]
     Active Substance: CETIRIZINE HYDROCHLORIDE
  3. VITAMIN D3 [Concomitant]
     Active Substance: CHOLECALCIFEROL
  4. MELATONIN [Concomitant]
     Active Substance: MELATONIN
  5. CALCITRIOL. [Concomitant]
     Active Substance: CALCITRIOL
  6. TUMS EX [Concomitant]
     Active Substance: CALCIUM CARBONATE
  7. MULTIVITAMIN + MINERAL [Concomitant]
     Active Substance: MINERALS\VITAMINS
  8. FLUTICASONE. [Concomitant]
     Active Substance: FLUTICASONE
  9. GLUCOSE [Concomitant]
     Active Substance: DEXTROSE
  10. CALCIUM [Concomitant]
     Active Substance: CALCIUM
  11. NAC 500 [Concomitant]
  12. LAMOTRIGINE. [Concomitant]
     Active Substance: LAMOTRIGINE
  13. SYNTHROID [Concomitant]
     Active Substance: LEVOTHYROXINE SODIUM
  14. LEVOCARNITINE. [Concomitant]
     Active Substance: LEVOCARNITINE
     Indication: CARNITINE DEFICIENCY
  15. CYSTARAN [Suspect]
     Active Substance: CYSTEAMINE HYDROCHLORIDE
     Indication: CYSTINOSIS
     Dosage: 1 DROP EVERY HOUR IN BOTH EYES
     Route: 047
     Dates: start: 20140814
  16. SODIUM BICARBONATE. [Concomitant]
     Active Substance: SODIUM BICARBONATE
  17. FLUORIDE [SODIUM FLUORIDE] [Concomitant]
     Active Substance: SODIUM FLUORIDE
  18. CALCIUM CITRATE + D3 [Concomitant]
  19. AMOXICILLIN. [Concomitant]
     Active Substance: AMOXICILLIN
  20. OMEPRAZOLE. [Concomitant]
     Active Substance: OMEPRAZOLE
  21. ASPIRIN 81 [Concomitant]
     Active Substance: ASPIRIN
  22. POTASSIUM [Concomitant]
     Active Substance: POTASSIUM
  23. POTASSIUM CITRATE. [Concomitant]
     Active Substance: POTASSIUM CITRATE
  24. CYSTAGON [Concomitant]
     Active Substance: CYSTEAMINE BITARTRATE
  25. PHOSPHA 250 NEUTRAL [Concomitant]
     Active Substance: POTASSIUM PHOSPHATE, MONOBASIC\SODIUM PHOSPHATE, DIBASIC, ANHYDROUS\SODIUM PHOSPHATE, MONOBASIC, MONOHYDRATE
  26. ELIQUIS [Concomitant]
     Active Substance: APIXABAN

REACTIONS (1)
  - Diplopia [Not Recovered/Not Resolved]
